FAERS Safety Report 6717956-4 (Version None)
Quarter: 2010Q2

REPORT INFORMATION
  Report Type: 
  Country: None (occurrence: None)
  Receive Date: 20100510
  Receipt Date: 20100427
  Transmission Date: 20101027
  Serious: Yes (Other)
  Sender: FDA-Public Use
  Company Number: PHHY2010CA03473

PATIENT
  Sex: Female

DRUGS (10)
  1. EXJADE [Suspect]
     Indication: MYELODYSPLASTIC SYNDROME
     Dosage: 2000 MG, QD
     Route: 048
     Dates: start: 20100125
  2. EXJADE [Suspect]
     Dosage: 1000 MG, BID
     Route: 048
     Dates: start: 20100125
  3. EXJADE [Suspect]
     Dosage: 1000 MG/DAY
     Route: 048
  4. EXJADE [Suspect]
     Dosage: 1000 MG, QD
     Dates: start: 20100125, end: 20100427
  5. LEVOTHYROXINE SODIUM [Concomitant]
  6. CALCIUM [Concomitant]
     Dosage: 1500 MG, UNK
  7. VITAMIN D [Concomitant]
  8. CENTRUM [Concomitant]
  9. FLAXSEED OIL [Concomitant]
  10. GLUCOSAMINE [Concomitant]

REACTIONS (21)
  - ANXIETY [None]
  - BACK PAIN [None]
  - COUGH [None]
  - DIZZINESS [None]
  - DRY EYE [None]
  - FATIGUE [None]
  - FEELING ABNORMAL [None]
  - INFLUENZA [None]
  - MUSCULOSKELETAL DISCOMFORT [None]
  - MUSCULOSKELETAL PAIN [None]
  - MUSCULOSKELETAL STIFFNESS [None]
  - MYALGIA [None]
  - NECK PAIN [None]
  - OROPHARYNGEAL PAIN [None]
  - PAIN [None]
  - POLLAKIURIA [None]
  - PRURITUS [None]
  - PYREXIA [None]
  - RASH [None]
  - RHINORRHOEA [None]
  - URTICARIA [None]
